FAERS Safety Report 16372215 (Version 1)
Quarter: 2019Q2

REPORT INFORMATION
  Report Type: Spontaneous
  Country: US (occurrence: US)
  Receive Date: 20190530
  Receipt Date: 20190530
  Transmission Date: 20190711
  Serious: No
  Sender: FDA-Public Use
  Company Number: US-GLAXOSMITHKLINE-US2019093981

PATIENT
  Age: 24 Year
  Sex: Male

DRUGS (1)
  1. FLONASE [Suspect]
     Active Substance: FLUTICASONE PROPIONATE
     Indication: HYPERSENSITIVITY
     Dosage: UNK UNK, QD
     Route: 045
     Dates: start: 20190521

REACTIONS (8)
  - Sinonasal obstruction [Unknown]
  - Discomfort [Unknown]
  - Adverse event [Unknown]
  - Eye pruritus [Unknown]
  - Hypersensitivity [Unknown]
  - Increased viscosity of upper respiratory secretion [Unknown]
  - Eyelid margin crusting [Unknown]
  - Ear discomfort [Unknown]

NARRATIVE: CASE EVENT DATE: 20190522
